FAERS Safety Report 4424038-3 (Version None)
Quarter: 2004Q3

REPORT INFORMATION
  Report Type: 
  Country: None (occurrence: None)
  Receive Date: 20040809
  Receipt Date: 20040727
  Transmission Date: 20050211
  Serious: Yes (Other)
  Sender: FDA-Public Use
  Company Number: 2004226183TH

PATIENT
  Age: 14 Year
  Sex: Male

DRUGS (6)
  1. DELTA-CORTEF [Suspect]
     Indication: LYMPHOCYTIC LEUKAEMIA
     Dosage: 40 MG/M2, QD, ORAL
     Route: 048
  2. VINCRISTINE [Concomitant]
  3. ELSPAR [Concomitant]
  4. DOXORUBICIN (DOXORUBICIN) [Concomitant]
  5. ETOPOSIDE [Concomitant]
  6. CYTOSINE ARABINOSIDE [Concomitant]

REACTIONS (2)
  - ADRENAL SUPPRESSION [None]
  - FEBRILE NEUTROPENIA [None]
